FAERS Safety Report 12936529 (Version 1)
Quarter: 2016Q4

REPORT INFORMATION
  Report Type: Report from Study
  Country: CA (occurrence: CA)
  Receive Date: 20161114
  Receipt Date: 20161114
  Transmission Date: 20170207
  Serious: Yes (Other)
  Sender: FDA-Public Use
  Company Number: CA-ASTELLAS-2016US044233

PATIENT

DRUGS (1)
  1. ERLOTINIB [Suspect]
     Active Substance: ERLOTINIB
     Indication: COLORECTAL CANCER METASTATIC
     Dosage: 150 MG, ONCE DAILY, CONTINUOUSLY ON A 4 WEEKLY CYCLE
     Route: 048

REACTIONS (11)
  - Constipation [Unknown]
  - Bone pain [Unknown]
  - Lymphopenia [Unknown]
  - Flank pain [Unknown]
  - Blood alkaline phosphatase abnormal [Unknown]
  - Abdominal pain [Unknown]
  - Muscle spasms [Unknown]
  - Pain [Unknown]
  - Haematuria [Unknown]
  - Prothrombin time abnormal [Unknown]
  - Hyperglycaemia [Unknown]
